FAERS Safety Report 15373185 (Version 3)
Quarter: 2018Q4

REPORT INFORMATION
  Report Type: Report from Study
  Country: None (occurrence: ES)
  Receive Date: 20180912
  Receipt Date: 20181105
  Transmission Date: 20190204
  Serious: Yes (Other)
  Sender: FDA-Public Use
  Company Number: ES-ABBVIE-18S-144-2477227-00

PATIENT
  Age: 58 Year
  Sex: Female

DRUGS (1)
  1. DUODOPA [Suspect]
     Active Substance: CARBIDOPA\LEVODOPA
     Indication: PARKINSON^S DISEASE
     Route: 050
     Dates: start: 20180524

REACTIONS (3)
  - Oromandibular dystonia [Recovered/Resolved]
  - Fall [Recovered/Resolved]
  - Fractured coccyx [Recovered/Resolved]

NARRATIVE: CASE EVENT DATE: 201809
